FAERS Safety Report 16923359 (Version 2)
Quarter: 2019Q4

REPORT INFORMATION
  Report Type: Report from Study
  Country: BR (occurrence: BR)
  Receive Date: 20191016
  Receipt Date: 20191022
  Transmission Date: 20200122
  Serious: Yes (Life-Threatening, Hospitalization, Disabling)
  Sender: FDA-Public Use
  Company Number: BR-ROCHE-2443599

PATIENT
  Age: 25 Year
  Sex: Female
  Weight: 58 kg

DRUGS (8)
  1. ONDANSETRON [Concomitant]
     Active Substance: ONDANSETRON
     Indication: PROPHYLAXIS
     Route: 065
     Dates: start: 20190430
  2. FERROUS SULPHATE [FERROUS SULFATE] [Concomitant]
     Active Substance: FERROUS SULFATE
     Route: 065
     Dates: start: 20190705
  3. GEMCITABINE. [Suspect]
     Active Substance: GEMCITABINE
     Indication: TRIPLE NEGATIVE BREAST CANCER
     Dosage: FREQUENCY: ON DAY 1 OF TREATMENT CYCLE?MOST RECENT DOSE PRIOR TO SAE AT 750 MG/M2 ON 07/OCT/2019
     Route: 042
     Dates: start: 20190430
  4. CODEINE [Concomitant]
     Active Substance: CODEINE
     Route: 065
     Dates: start: 20190401
  5. CITALOPRAM [Concomitant]
     Active Substance: CITALOPRAM HYDROBROMIDE
     Route: 065
     Dates: start: 20190315
  6. ATEZOLIZUMAB. [Suspect]
     Active Substance: ATEZOLIZUMAB
     Indication: TRIPLE NEGATIVE BREAST CANCER
     Dosage: MOST RECENT DOSE PRIOR TO SAE: 07/OCT/2019
     Route: 042
     Dates: start: 20190430
  7. CARBOPLATIN. [Suspect]
     Active Substance: CARBOPLATIN
     Indication: TRIPLE NEGATIVE BREAST CANCER
     Dosage: FREQUENCY: ON DAY 1 OF TREATMENT CYCLE?MOST RECENT DOSE PRIOR TO SAE AT 193.2 MG ON 07/OCT/2019
     Route: 042
     Dates: start: 20190430
  8. KETOROLAC [Concomitant]
     Active Substance: KETOROLAC TROMETHAMINE
     Route: 065
     Dates: start: 20190911

REACTIONS (1)
  - Pneumonia [Not Recovered/Not Resolved]

NARRATIVE: CASE EVENT DATE: 20191009
